FAERS Safety Report 20501260 (Version 3)
Quarter: 2022Q3

REPORT INFORMATION
  Report Type: Spontaneous
  Country: US (occurrence: None)
  Receive Date: 20220222
  Receipt Date: 20220926
  Transmission Date: 20221027
  Serious: Yes (Death, Other)
  Sender: FDA-Public Use
  Company Number: 2022A081719

PATIENT
  Age: 62 Year
  Sex: Female
  Weight: 84.6 kg

DRUGS (85)
  1. NEXIUM [Suspect]
     Active Substance: ESOMEPRAZOLE MAGNESIUM
     Indication: Gastrooesophageal reflux disease
     Route: 048
     Dates: start: 2002, end: 2019
  2. PRILOSEC [Suspect]
     Active Substance: OMEPRAZOLE MAGNESIUM
     Indication: Gastrooesophageal reflux disease
     Route: 048
     Dates: start: 2002, end: 2019
  3. PRILOSEC [Suspect]
     Active Substance: OMEPRAZOLE MAGNESIUM
     Indication: Gastrooesophageal reflux disease
     Route: 065
     Dates: start: 2010, end: 2021
  4. PREVACID [Suspect]
     Active Substance: LANSOPRAZOLE
     Indication: Gastrooesophageal reflux disease
     Route: 065
     Dates: start: 2002, end: 2019
  5. PANTOPRAZOLE [Suspect]
     Active Substance: PANTOPRAZOLE
     Indication: Gastrooesophageal reflux disease
     Route: 065
     Dates: start: 2019
  6. METOPROLOL [Concomitant]
     Active Substance: METOPROLOL
  7. GLYBURIDE [Concomitant]
     Active Substance: GLYBURIDE
  8. DULOXETINE [Concomitant]
     Active Substance: DULOXETINE
  9. LEVOTHYROXINE [Concomitant]
     Active Substance: LEVOTHYROXINE
  10. MAGNESIUM OXIDE [Concomitant]
     Active Substance: MAGNESIUM OXIDE
  11. CARVEDILOL [Concomitant]
     Active Substance: CARVEDILOL
  12. PRAVASTATIN [Concomitant]
     Active Substance: PRAVASTATIN
     Indication: Blood cholesterol
  13. AMLODIPINE [Concomitant]
     Active Substance: AMLODIPINE BESYLATE
  14. GABAPENTIN [Concomitant]
     Active Substance: GABAPENTIN
  15. SPIRONOLACTONE [Concomitant]
     Active Substance: SPIRONOLACTONE
     Indication: Blood pressure measurement
  16. MAXIMUM [Concomitant]
  17. ATENOLOL [Concomitant]
     Active Substance: ATENOLOL
  18. NITROSTAT [Concomitant]
     Active Substance: NITROGLYCERIN
  19. DEXAMETHASONE [Concomitant]
     Active Substance: DEXAMETHASONE
  20. CLONIDINE [Concomitant]
     Active Substance: CLONIDINE
  21. LIDOCAINE [Concomitant]
     Active Substance: LIDOCAINE
  22. ALBUTEROL [Concomitant]
     Active Substance: ALBUTEROL
  23. BREO ELLIPTA [Concomitant]
     Active Substance: FLUTICASONE FUROATE\VILANTEROL TRIFENATATE
  24. CALCIUM ACETATE [Concomitant]
     Active Substance: CALCIUM ACETATE
  25. XANAX [Concomitant]
     Active Substance: ALPRAZOLAM
  26. SYNTHROID [Concomitant]
     Active Substance: LEVOTHYROXINE SODIUM
  27. HYDRALAZINE [Concomitant]
     Active Substance: HYDRALAZINE HYDROCHLORIDE
     Indication: Blood pressure measurement
  28. NIFEDIPINE [Concomitant]
     Active Substance: NIFEDIPINE
  29. PROCARDIA [Concomitant]
     Active Substance: NIFEDIPINE
  30. WELLBUTRIN [Concomitant]
     Active Substance: BUPROPION HYDROCHLORIDE
  31. MIRALAX [Concomitant]
     Active Substance: POLYETHYLENE GLYCOL 3350
  32. CYMBALTA [Concomitant]
     Active Substance: DULOXETINE HYDROCHLORIDE
  33. ATORVASTATIN [Concomitant]
     Active Substance: ATORVASTATIN
     Indication: Blood cholesterol
  34. DUONEB [Concomitant]
     Active Substance: ALBUTEROL SULFATE\IPRATROPIUM BROMIDE
  35. ALPRAZOLAM [Concomitant]
     Active Substance: ALPRAZOLAM
  36. CEFTRIAXONE [Concomitant]
     Active Substance: CEFTRIAXONE
     Indication: Infection
     Route: 065
     Dates: start: 201911, end: 201912
  37. CEFTRIAXONE [Concomitant]
     Active Substance: CEFTRIAXONE
     Indication: Infection
     Route: 065
     Dates: start: 201911, end: 201912
  38. CEFTRIAXONE [Concomitant]
     Active Substance: CEFTRIAXONE
     Indication: Infection
     Route: 065
     Dates: start: 201911, end: 201912
  39. CEFTRIAXONE [Concomitant]
     Active Substance: CEFTRIAXONE
     Indication: Infection
     Route: 065
     Dates: start: 201911, end: 201912
  40. COLACE [Concomitant]
     Active Substance: DOCUSATE SODIUM
  41. LANTUS [Concomitant]
     Active Substance: INSULIN GLARGINE
  42. IPRATROPIUM [Concomitant]
     Active Substance: IPRATROPIUM
  43. VALACYCLOVIR [Concomitant]
     Active Substance: VALACYCLOVIR HYDROCHLORIDE
  44. HYDROMORPHONE [Concomitant]
     Active Substance: HYDROMORPHONE
  45. LEVAQUIN [Concomitant]
     Active Substance: LEVOFLOXACIN
     Indication: Infection
  46. HYDROCODONE [Concomitant]
     Active Substance: HYDROCODONE
  47. ORPHENADRINE/ACETYLSALICYLIC ACID/PHENACETIN/CAFFEINE [Concomitant]
  48. PROCRIT [Concomitant]
     Active Substance: ERYTHROPOIETIN
  49. FLEXERIL [Concomitant]
     Active Substance: CYCLOBENZAPRINE HYDROCHLORIDE
  50. KETOROLAC [Concomitant]
     Active Substance: KETOROLAC TROMETHAMINE
     Indication: Pain
     Route: 065
     Dates: start: 201510, end: 201512
  51. TORADOL [Concomitant]
     Active Substance: KETOROLAC TROMETHAMINE
     Indication: Pain
     Route: 065
     Dates: start: 201012, end: 201510
  52. MELOXICAM [Concomitant]
     Active Substance: MELOXICAM
     Indication: Pain
     Route: 065
     Dates: start: 201110, end: 201402
  53. OXAPROZIN [Concomitant]
     Active Substance: OXAPROZIN
     Indication: Pain
     Route: 065
     Dates: start: 201106
  54. AMOXICILLIN [Concomitant]
     Active Substance: AMOXICILLIN
     Indication: Infection
     Route: 065
     Dates: start: 201102, end: 201401
  55. ZITHROMAX [Concomitant]
     Active Substance: AZITHROMYCIN DIHYDRATE
     Indication: Infection
     Route: 065
     Dates: start: 201807, end: 201911
  56. ANCEF [Concomitant]
     Active Substance: CEFAZOLIN SODIUM
     Indication: Infection
     Route: 065
     Dates: start: 201009, end: 201510
  57. AZITHROMYCIN [Concomitant]
     Active Substance: AZITHROMYCIN
     Indication: Infection
     Route: 065
     Dates: start: 2017, end: 2019
  58. CEFAZOLIN [Concomitant]
     Active Substance: CEFAZOLIN
     Indication: Infection
     Route: 065
     Dates: start: 201009, end: 201201
  59. ROCEPHIN [Concomitant]
     Active Substance: CEFTRIAXONE SODIUM
     Indication: Infection
  60. CIPROFLOXACIN [Concomitant]
     Active Substance: CIPROFLOXACIN
     Indication: Infection
  61. DOXYCYCLINE [Concomitant]
     Active Substance: DOXYCYCLINE
     Indication: Infection
  62. LEVOFLOXACIN [Concomitant]
     Active Substance: LEVOFLOXACIN
     Indication: Infection
  63. NEOMYCIN [Concomitant]
     Active Substance: NEOMYCIN
     Indication: Infection
  64. POLYMYXIN [Concomitant]
     Active Substance: POLYMYXIN
     Indication: Infection
  65. VANCOMYCIN [Concomitant]
     Active Substance: VANCOMYCIN
     Indication: Infection
  66. LISINOPRIL [Concomitant]
     Active Substance: LISINOPRIL
     Indication: Blood pressure measurement
  67. PRINIVIL [Concomitant]
     Active Substance: LISINOPRIL
     Indication: Blood pressure measurement
  68. FUROSEMIDE [Concomitant]
     Active Substance: FUROSEMIDE
     Indication: Renal injury
  69. LASIX [Concomitant]
     Active Substance: FUROSEMIDE
     Indication: Renal injury
  70. ALDACTONE [Concomitant]
     Active Substance: SPIRONOLACTONE
     Indication: Blood pressure measurement
  71. LIPITOR [Concomitant]
     Active Substance: ATORVASTATIN CALCIUM
     Indication: Blood cholesterol
  72. PRAVACHOL [Concomitant]
     Active Substance: PRAVASTATIN SODIUM
     Indication: Blood cholesterol
  73. CLOPIDOGREL [Concomitant]
     Active Substance: CLOPIDOGREL BISULFATE
     Indication: Cardiac disorder
  74. PLAVIX [Concomitant]
     Active Substance: CLOPIDOGREL BISULFATE
     Indication: Cardiac disorder
  75. LITHIUM [Concomitant]
     Active Substance: LITHIUM
     Indication: Insomnia
  76. VALPROATE [Concomitant]
     Active Substance: VALPROIC ACID
     Indication: Insomnia
  77. BENADRYL [Concomitant]
     Active Substance: DIPHENHYDRAMINE HYDROCHLORIDE
     Indication: Hypersensitivity
  78. ASPIRIN [Concomitant]
     Active Substance: ASPIRIN
     Indication: Pain
  79. VITAMINS [Concomitant]
     Active Substance: VITAMINS
     Indication: Routine health maintenance
  80. FAMOTIDINE [Concomitant]
     Active Substance: FAMOTIDINE
  81. PEPCID [Concomitant]
     Active Substance: FAMOTIDINE
  82. ZANTAC [Concomitant]
     Active Substance: RANITIDINE HYDROCHLORIDE
  83. RANITIDINE [Concomitant]
     Active Substance: RANITIDINE
  84. TUMS [Concomitant]
     Active Substance: CALCIUM CARBONATE
  85. MYLANTA [Concomitant]
     Active Substance: ALUMINUM HYDROXIDE\DIMETHICONE\MAGNESIUM HYDROXIDE

REACTIONS (8)
  - Death [Fatal]
  - Chronic kidney disease [Unknown]
  - End stage renal disease [Unknown]
  - Acute kidney injury [Unknown]
  - Renal tubular necrosis [Unknown]
  - Nephrogenic anaemia [Unknown]
  - Nephrotic syndrome [Unknown]
  - Renal failure [Unknown]

NARRATIVE: CASE EVENT DATE: 20120101
